FAERS Safety Report 7208081-7 (Version None)
Quarter: 2011Q1

REPORT INFORMATION
  Report Type: 
  Country: None (occurrence: None)
  Receive Date: 20110104
  Receipt Date: 20101230
  Transmission Date: 20110831
  Serious: No
  Sender: FDA-Public Use
  Company Number: US-PFIZER INC-2010182247

PATIENT
  Sex: Male

DRUGS (1)
  1. DILANTIN [Suspect]
     Indication: CONVULSION
     Dosage: 300 MG, 1X/DAY
     Route: 048

REACTIONS (1)
  - DRUG SCREEN POSITIVE [None]
